FAERS Safety Report 24226758 (Version 1)
Quarter: 2024Q3

REPORT INFORMATION
  Report Type: Spontaneous
  Country: US (occurrence: US)
  Receive Date: 20240820
  Receipt Date: 20240820
  Transmission Date: 20241017
  Serious: Yes (Other)
  Sender: MYLAN
  Company Number: US-MYLANLABS-2024M1074741

PATIENT
  Age: 53 Year
  Sex: Female

DRUGS (9)
  1. ASCORBIC ACID [Suspect]
     Active Substance: ASCORBIC ACID
     Indication: Microneedling
     Dosage: UNK
     Route: 062
  2. PREDNISONE [Suspect]
     Active Substance: PREDNISONE
     Indication: Foreign body reaction
     Dosage: 60 MILLIGRAM, 2-WEEK TAPER STARTING AT 60MG
     Route: 065
  3. PREDNISONE [Suspect]
     Active Substance: PREDNISONE
     Dosage: 30 MILLIGRAM, QD, RESTARTED ON A LOWER PREDNISONE DOSE
     Route: 065
  4. PREDNISONE [Suspect]
     Active Substance: PREDNISONE
     Dosage: 15 MILLIGRAM,
     Route: 065
  5. PREDNISONE [Suspect]
     Active Substance: PREDNISONE
     Dosage: UNK, TAPER OFF
     Route: 065
  6. TRIAMCINOLONE [Suspect]
     Active Substance: TRIAMCINOLONE
     Indication: Foreign body reaction
     Dosage: UNK, 10 TO 30 MG/CC FOR APPROXIMATELY 2 WEEKS
     Route: 026
  7. HYALURONIC ACID [Suspect]
     Active Substance: HYALURONIC ACID
     Indication: Microneedling
     Dosage: UNK
     Route: 062
  8. HYALURONIDASE [Suspect]
     Active Substance: HYALURONIDASE\HYALURONIDASE (HUMAN RECOMBINANT)
     Indication: Foreign body reaction
     Dosage: UNK
     Route: 065
  9. DOXYCYCLINE [Concomitant]
     Active Substance: DOXYCYCLINE\DOXYCYCLINE HYCLATE
     Indication: Foreign body reaction
     Dosage: 100 MILLIGRAM, BID
     Route: 065

REACTIONS (6)
  - Foreign body reaction [Recovering/Resolving]
  - Rebound effect [Recovering/Resolving]
  - Condition aggravated [Recovering/Resolving]
  - Erythema [Recovering/Resolving]
  - Scar [Recovering/Resolving]
  - Drug ineffective [Unknown]
